FAERS Safety Report 6361000-8 (Version None)
Quarter: 2009Q3

REPORT INFORMATION
  Report Type: 
  Country: None (occurrence: None)
  Receive Date: 20090918
  Receipt Date: 20090626
  Transmission Date: 20100115
  Serious: Yes (Other)
  Sender: FDA-Public Use
  Company Number: A0789183A

PATIENT
  Age: 49 Year
  Sex: Female
  Weight: 145.5 kg

DRUGS (9)
  1. PROMACTA [Suspect]
     Indication: IDIOPATHIC THROMBOCYTOPENIC PURPURA
     Route: 048
     Dates: start: 20081201
  2. ALLOPURINOL [Concomitant]
     Route: 048
  3. BYETTA [Concomitant]
     Route: 058
  4. LASIX [Concomitant]
  5. POTASSIUM CHLORIDE [Concomitant]
  6. PREDNISONE [Concomitant]
  7. TAMOXIFEN CITRATE [Concomitant]
  8. DIOVAN [Concomitant]
  9. EFFEXOR [Concomitant]

REACTIONS (1)
  - THROMBOCYTOPENIA [None]
